FAERS Safety Report 7433925-3 (Version None)
Quarter: 2011Q2

REPORT INFORMATION
  Report Type: 
  Country: None (occurrence: None)
  Receive Date: 20110420
  Receipt Date: 20110420
  Transmission Date: 20111010
  Serious: Yes (Other)
  Sender: FDA-Public Use
  Company Number: None

PATIENT
  Age: 77 Year
  Sex: Female
  Weight: 60.1016 kg

DRUGS (11)
  1. CALCIUM+D [Concomitant]
  2. LEXAPRO [Concomitant]
  3. MULTIVIT [Concomitant]
  4. FISH OIL [Concomitant]
  5. LOTENSIN [Concomitant]
  6. RAD-001 EVEROLIMUS [Suspect]
     Indication: WALDENSTROM'S MACROGLOBULINAEMIA
     Dosage: 5.0 MG PO QDAY
     Route: 048
     Dates: start: 20100702, end: 20110407
  7. VIT D [Concomitant]
  8. PREDNISONE [Concomitant]
  9. LASIX [Concomitant]
  10. MAGACE [Concomitant]
  11. VIT C [Concomitant]

REACTIONS (1)
  - INTERSTITIAL LUNG DISEASE [None]
